FAERS Safety Report 24016889 (Version 1)
Quarter: 2024Q2

REPORT INFORMATION
  Report Type: Spontaneous
  Country: CN (occurrence: CN)
  Receive Date: 20240626
  Receipt Date: 20240626
  Transmission Date: 20240715
  Serious: Yes (Hospitalization, Other)
  Sender: FDA-Public Use
  Company Number: CN-002147023-NVSC2024CN131184

PATIENT
  Age: 85 Year
  Sex: Female
  Weight: 62 kg

DRUGS (1)
  1. DEXAMETHASONE\TOBRAMYCIN [Suspect]
     Active Substance: DEXAMETHASONE\TOBRAMYCIN
     Indication: Iridocyclitis
     Dosage: 8 DROPS QD (2 DRP, QID)
     Route: 047
     Dates: start: 20220803, end: 20240612

REACTIONS (4)
  - Cataract [Recovering/Resolving]
  - Blood pressure abnormal [Unknown]
  - Visual acuity reduced [Unknown]
  - Halo vision [Unknown]

NARRATIVE: CASE EVENT DATE: 20240612
